FAERS Safety Report 6898224-7 (Version None)
Quarter: 2010Q3

REPORT INFORMATION
  Report Type: 
  Country: None (occurrence: None)
  Receive Date: 20100802
  Receipt Date: 20070924
  Transmission Date: 20110219
  Serious: No
  Sender: FDA-Public Use
  Company Number: US-PFIZER INC-2007080870

PATIENT
  Sex: Female

DRUGS (5)
  1. LYRICA [Suspect]
     Indication: FIBROMYALGIA
     Dates: start: 20070801
  2. ZOLOFT [Concomitant]
  3. VALSARTAN [Concomitant]
     Indication: HYPERTENSION
  4. VYTORIN [Concomitant]
  5. DARVOCET [Concomitant]

REACTIONS (4)
  - FEELING ABNORMAL [None]
  - OEDEMA PERIPHERAL [None]
  - PAIN IN EXTREMITY [None]
  - WEIGHT INCREASED [None]
